FAERS Safety Report 9849219 (Version 1)
Quarter: 2013Q4

REPORT INFORMATION
  Report Type: Spontaneous
  Country: US (occurrence: None)
  Receive Date: 20131223
  Receipt Date: 20131223
  Transmission Date: 20140711
  Serious: No
  Sender: FDA-Public Use
  Company Number: CABO-13003720

PATIENT
  Age: 63 Year
  Sex: Female

DRUGS (1)
  1. COMETRIQ (CABOZANTINIB) CAPSULE [Suspect]
     Indication: RENAL CANCER
     Route: 048
     Dates: start: 20131015, end: 20131127

REACTIONS (2)
  - Malignant neoplasm progression [None]
  - Off label use [None]
